FAERS Safety Report 5329298-2 (Version None)
Quarter: 2007Q2

REPORT INFORMATION
  Report Type: 
  Country: None (occurrence: None)
  Receive Date: 20070518
  Receipt Date: 20070510
  Transmission Date: 20071010
  Serious: Yes (Hospitalization)
  Sender: FDA-Public Use
  Company Number: FR-ABBOTT-07P-056-0368144-00

PATIENT
  Age: 70 Year
  Sex: Male

DRUGS (9)
  1. ZECLAR [Suspect]
     Indication: HELICOBACTER GASTRITIS
     Route: 048
     Dates: start: 20070310, end: 20070319
  2. AMOXICILLIN [Suspect]
     Indication: HELICOBACTER GASTRITIS
     Route: 048
     Dates: start: 20070310, end: 20070319
  3. SPIRONOLACTONE [Concomitant]
     Indication: ASCITES
     Route: 048
     Dates: start: 20070306
  4. PROPRANOLOL [Concomitant]
     Indication: VARICES OESOPHAGEAL
     Route: 048
     Dates: start: 20070308
  5. FUROSEMIDE [Concomitant]
     Indication: ASCITES
     Route: 048
  6. PANTOPRAZOLE SODIUM [Concomitant]
     Indication: HELICOBACTER GASTRITIS
     Route: 048
     Dates: start: 20070306
  7. AMIODARONE HCL [Concomitant]
     Indication: ASCITES
  8. REPAGLINIDE [Concomitant]
     Indication: ASCITES
  9. LEVOTHYROXINE SODIUM [Concomitant]
     Indication: ASCITES

REACTIONS (4)
  - ALANINE AMINOTRANSFERASE INCREASED [None]
  - ASPARTATE AMINOTRANSFERASE INCREASED [None]
  - BLOOD ALKALINE PHOSPHATASE INCREASED [None]
  - GAMMA-GLUTAMYLTRANSFERASE INCREASED [None]
